FAERS Safety Report 9288707 (Version 1)
Quarter: 2013Q2

REPORT INFORMATION
  Report Type: Spontaneous
  Country: US (occurrence: US)
  Receive Date: 20130514
  Receipt Date: 20130514
  Transmission Date: 20140414
  Serious: No
  Sender: FDA-Public Use
  Company Number: US-009507513-1305USA008547

PATIENT
  Age: 11 Year
  Sex: Male

DRUGS (3)
  1. CLARITIN CHEWABLE TABLETS [Suspect]
     Indication: SEASONAL ALLERGY
     Dosage: 5 MG, QD
     Route: 048
  2. CLARITIN CHEWABLE TABLETS [Suspect]
     Dosage: 20 MG, ONCE
     Route: 048
     Dates: start: 20130425
  3. VYVANSE [Concomitant]
     Indication: PRODUCT USED FOR UNKNOWN INDICATION
     Dosage: UNK, UNKNOWN

REACTIONS (3)
  - Accidental overdose [Recovering/Resolving]
  - Accidental exposure to product by child [Recovering/Resolving]
  - Underdose [Unknown]
